FAERS Safety Report 17573231 (Version 1)
Quarter: 2020Q1

REPORT INFORMATION
  Report Type: Spontaneous
  Country: GB (occurrence: GB)
  Receive Date: 20200323
  Receipt Date: 20200323
  Transmission Date: 20200409
  Serious: Yes (Death, Other)
  Sender: FDA-Public Use
  Company Number: GB-MYLANLABS-2020M1029364

PATIENT
  Age: 16 Year
  Sex: Male
  Weight: 74.8 kg

DRUGS (1)
  1. ISOTRETINOIN. [Suspect]
     Active Substance: ISOTRETINOIN
     Indication: ACNE
     Dosage: 30 MILLIGRAM, QD
     Route: 048
     Dates: start: 20130430, end: 20131030

REACTIONS (9)
  - Negative thoughts [Unknown]
  - Abnormal loss of weight [Unknown]
  - Suicidal ideation [Unknown]
  - Fatigue [Unknown]
  - Eating disorder [Unknown]
  - Abnormal weight gain [Unknown]
  - Depression [Unknown]
  - Death [Fatal]
  - Spine malformation [Unknown]

NARRATIVE: CASE EVENT DATE: 20130601
